FAERS Safety Report 6235541-8 (Version None)
Quarter: 2009Q2

REPORT INFORMATION
  Report Type: 
  Country: None (occurrence: None)
  Receive Date: 20090618
  Receipt Date: 20081118
  Transmission Date: 20091009
  Serious: No
  Sender: FDA-Public Use
  Company Number: US-ASTRAZENECA-2008UW25841

PATIENT
  Age: 75 Year
  Sex: Male

DRUGS (7)
  1. RHINOCORT [Suspect]
     Indication: COUGH
     Route: 045
  2. NEURONTIN [Concomitant]
  3. KEPPRA [Concomitant]
  4. CLONAZEPAM [Concomitant]
  5. REQUIP [Concomitant]
  6. ZOCOR [Concomitant]
  7. SYNTHROID [Concomitant]

REACTIONS (1)
  - FATIGUE [None]
